FAERS Safety Report 10514248 (Version 1)
Quarter: 2014Q4

REPORT INFORMATION
  Report Type: Spontaneous
  Country: JP (occurrence: JP)
  Receive Date: 20141013
  Receipt Date: 20141013
  Transmission Date: 20150528
  Serious: Yes (Hospitalization, Other)
  Sender: FDA-Public Use
  Company Number: JP-SA-2014SA139133

PATIENT
  Age: 86 Year
  Sex: Male
  Weight: 55 kg

DRUGS (8)
  1. KIKLIN [Suspect]
     Active Substance: BIXALOMER
     Indication: HYPERPHOSPHATAEMIA
     Route: 048
     Dates: start: 20130805
  2. FOSRENOL [Concomitant]
     Active Substance: LANTHANUM CARBONATE
     Route: 048
  3. MYSLEE [Suspect]
     Active Substance: ZOLPIDEM TARTRATE
     Indication: INSOMNIA
     Route: 048
     Dates: start: 20140604, end: 20140605
  4. CALTAN [Concomitant]
     Active Substance: CALCIUM CARBONATE
  5. LANSOPRAZOLE. [Concomitant]
     Active Substance: LANSOPRAZOLE
     Route: 048
  6. TENELIA [Concomitant]
     Active Substance: CITALOPRAM HYDROBROMIDE
     Route: 048
  7. NESP [Concomitant]
     Active Substance: DARBEPOETIN ALFA
  8. ADALAT [Concomitant]
     Active Substance: NIFEDIPINE

REACTIONS (5)
  - Pulmonary oedema [Recovering/Resolving]
  - Large intestine polyp [Recovering/Resolving]
  - Insomnia [Recovering/Resolving]
  - Shunt malfunction [Recovering/Resolving]
  - Dizziness [Recovering/Resolving]

NARRATIVE: CASE EVENT DATE: 20131116
